FAERS Safety Report 5008262-7 (Version None)
Quarter: 2006Q2

REPORT INFORMATION
  Report Type: 
  Country: None (occurrence: None)
  Receive Date: 20060523
  Receipt Date: 20060419
  Transmission Date: 20061013
  Serious: Yes (Hospitalization)
  Sender: FDA-Public Use
  Company Number: PHNU2006DE01745

PATIENT
  Sex: Female
  Weight: 80 kg

DRUGS (6)
  1. ST. JOHN'S WORT [Concomitant]
     Indication: DEPRESSION
     Dosage: UNK, UNK
  2. ST. JOHN'S WORT [Concomitant]
     Dates: start: 20060301
  3. TEGRETOL [Suspect]
     Dosage: 2000 MG/DAY
     Dates: start: 19930427
  4. DEXAMETHASONE [Concomitant]
     Dosage: 1.5 MG, QD
     Dates: start: 19930601
  5. TEGRETOL-XR [Concomitant]
     Dosage: 300 MG, BID
     Route: 048
     Dates: start: 19930101
  6. SOSTRIL [Concomitant]
     Dates: start: 19930101

REACTIONS (7)
  - ASTHENIA [None]
  - BURNING SENSATION [None]
  - DEPRESSION [None]
  - FACIAL PARESIS [None]
  - HEMIPARESIS [None]
  - MASS EXCISION [None]
  - METASTATIC MALIGNANT MELANOMA [None]
